FAERS Safety Report 19574685 (Version 2)
Quarter: 2021Q3

REPORT INFORMATION
  Report Type: Other
  Country: BE (occurrence: BE)
  Receive Date: 20210719
  Receipt Date: 20210805
  Transmission Date: 20211014
  Serious: Yes (Other)
  Sender: FDA-Public Use
  Company Number: BE-CELLTRION INC.-2021BE009457

PATIENT

DRUGS (2)
  1. RITUXIMAB (UNKNOWN) [Suspect]
     Active Substance: RITUXIMAB
     Indication: WALDENSTROM^S MACROGLOBULINAEMIA
     Dosage: 1400 MG
     Route: 058
     Dates: start: 20201130
  2. IMBRUVICA [Suspect]
     Active Substance: IBRUTINIB
     Indication: WALDENSTROM^S MACROGLOBULINAEMIA
     Dosage: 420 MG
     Route: 048
     Dates: start: 20201106

REACTIONS (5)
  - Incorrect route of product administration [Unknown]
  - Waldenstrom^s macroglobulinaemia [Unknown]
  - Off label use [Unknown]
  - Disease progression [Unknown]
  - Drug ineffective [Unknown]
